FAERS Safety Report 15163950 (Version 1)
Quarter: 2018Q3

REPORT INFORMATION
  Report Type: Spontaneous
  Country: BE (occurrence: BE)
  Receive Date: 20180719
  Receipt Date: 20180719
  Transmission Date: 20181010
  Serious: Yes (Hospitalization)
  Sender: FDA-Public Use
  Company Number: BE-ASTRAZENECA-2018SE91404

PATIENT
  Age: 25080 Day
  Sex: Male
  Weight: 95 kg

DRUGS (14)
  1. CRESTOR [Concomitant]
     Active Substance: ROSUVASTATIN CALCIUM
  2. METFORMAX [Concomitant]
     Active Substance: METFORMIN HYDROCHLORIDE
     Dosage: 2X850 MG DAILY
  3. ALDACTONE [Concomitant]
     Active Substance: SPIRONOLACTONE
  4. DILTIAZEM. [Concomitant]
     Active Substance: DILTIAZEM
  5. FASENRA [Suspect]
     Active Substance: BENRALIZUMAB
     Route: 058
     Dates: start: 20180705
  6. EZETROL [Concomitant]
     Active Substance: EZETIMIBE
  7. ASAFLOW [Concomitant]
     Active Substance: ASPIRIN
  8. NOVOMIX [Concomitant]
     Active Substance: INSULIN ASPART
     Dosage: 16?16?14E DAILY
     Route: 058
  9. ZYLORIC [Concomitant]
     Active Substance: ALLOPURINOL
  10. BURINEX [Concomitant]
     Active Substance: BUMETANIDE
  11. KININESULPHATE [Concomitant]
  12. SPIRIVA RESPIMAT [Concomitant]
     Active Substance: TIOTROPIUM BROMIDE
     Dosage: 2.5 UG DAILY, 1 TO 2 PUFFS
  13. REDOMEX [Concomitant]
     Active Substance: AMITRIPTYLINE HYDROCHLORIDE
  14. SERETIDE [Concomitant]
     Active Substance: FLUTICASONE PROPIONATE\SALMETEROL XINAFOATE
     Dosage: 25???G/250???G DAILY, 2 TO 1 PUFF

REACTIONS (3)
  - Pyrexia [Unknown]
  - Atrial fibrillation [Unknown]
  - Atrial flutter [Unknown]

NARRATIVE: CASE EVENT DATE: 20180710
